FAERS Safety Report 17932336 (Version 2)
Quarter: 2020Q2

REPORT INFORMATION
  Report Type: Report from Study
  Country: MX (occurrence: MX)
  Receive Date: 20200624
  Receipt Date: 20200629
  Transmission Date: 20200714
  Serious: Yes (Other)
  Sender: FDA-Public Use
  Company Number: MX-UCBSA-2020009742

PATIENT
  Age: 63 Year
  Sex: Female
  Weight: 50 kg

DRUGS (5)
  1. ROTIGOTINE [Suspect]
     Active Substance: ROTIGOTINE
     Indication: PARKINSON^S DISEASE
     Dosage: 4 MILLIGRAM, ONCE DAILY (QD)
     Route: 062
     Dates: start: 202002, end: 2020
  2. NIAR [Concomitant]
     Indication: UNEVALUABLE EVENT
     Dosage: UNK
  3. LEVODOPA [Concomitant]
     Active Substance: LEVODOPA
     Indication: LIMB DISCOMFORT
     Dosage: UNK
  4. KINESTREL [Concomitant]
     Indication: PRODUCT USED FOR UNKNOWN INDICATION
     Dosage: UNK
  5. CITALOPRAM [Concomitant]
     Active Substance: CITALOPRAM HYDROBROMIDE
     Indication: DEPRESSION
     Dosage: UNK

REACTIONS (4)
  - Parkinson^s disease [Not Recovered/Not Resolved]
  - Fall [Unknown]
  - Drug ineffective [Unknown]
  - Tooth loss [Unknown]

NARRATIVE: CASE EVENT DATE: 202002
